FAERS Safety Report 16136020 (Version 2)
Quarter: 2019Q1

REPORT INFORMATION
  Report Type: Spontaneous
  Country: US (occurrence: US)
  Receive Date: 20190329
  Receipt Date: 20190329
  Transmission Date: 20190418
  Serious: Yes (Hospitalization, Other)
  Sender: FDA-Public Use
  Company Number: US-SHIRE-US201909982

PATIENT
  Age: 48 Year
  Sex: Female

DRUGS (2)
  1. CINRYZE [Suspect]
     Active Substance: HUMAN C1-ESTERASE INHIBITOR
     Indication: PRODUCT USED FOR UNKNOWN INDICATION
     Dosage: 1000 INTERNATIONAL UNIT, Q3 DAYS
     Route: 042
     Dates: start: 20140909, end: 20190131
  2. FIRAZYR [Suspect]
     Active Substance: ICATIBANT ACETATE
     Indication: PRODUCT USED FOR UNKNOWN INDICATION
     Dosage: 30MG/3ML, AS REQ^D
     Route: 058

REACTIONS (2)
  - Hereditary angioedema [Recovering/Resolving]
  - Thrombosis [Recovered/Resolved]

NARRATIVE: CASE EVENT DATE: 20190131
